FAERS Safety Report 23849204 (Version 1)
Quarter: 2024Q2

REPORT INFORMATION
  Report Type: Spontaneous
  Country: US (occurrence: US)
  Receive Date: 20240513
  Receipt Date: 20240513
  Transmission Date: 20240715
  Serious: Yes (Other)
  Sender: FDA-Public Use
  Company Number: US-JNJFOC-20240516851

PATIENT

DRUGS (1)
  1. LISTERINE ORIGINAL [Suspect]
     Active Substance: EUCALYPTOL\MENTHOL\METHYL SALICYLATE\THYMOL
     Indication: Euphoric mood
     Route: 048

REACTIONS (3)
  - Drug abuse [Unknown]
  - Dizziness [Not Recovered/Not Resolved]
  - Vomiting [Unknown]
